FAERS Safety Report 7103478 (Version 9)
Quarter: 2014Q1

REPORT INFORMATION
  Report Type: Spontaneous
  Country: US (occurrence: US)
  Receive Date: 20090902
  Receipt Date: 20140128
  Transmission Date: 20141002
  Serious: Yes (Hospitalization, Other)
  Sender: FDA-Public Use
  Company Number: PHEH2009US09834

PATIENT
  Sex: Female

DRUGS (12)
  1. AREDIA [Suspect]
     Indication: HYPERCALCAEMIA
     Dosage: 90 MG,
     Route: 042
  2. ZOMETA [Suspect]
     Indication: PLASMA CELL MYELOMA
     Route: 042
     Dates: start: 200901, end: 200904
  3. THALIDOMIDE [Suspect]
  4. REVLIMID [Suspect]
  5. MORPHINE [Concomitant]
  6. NEXIUM [Concomitant]
  7. AMOXICILLIN [Concomitant]
  8. VICODIN [Concomitant]
  9. TYLENOL [Concomitant]
  10. DARVOCET-N [Concomitant]
  11. CHEMOTHERAPEUTICS NOS [Concomitant]
  12. RADIATION THERAPY [Concomitant]

REACTIONS (86)
  - Dehydration [Unknown]
  - Osteonecrosis of jaw [Unknown]
  - Injury [Unknown]
  - Gingival bleeding [Unknown]
  - Exposed bone in jaw [Unknown]
  - Gingival pain [Unknown]
  - Infection [Unknown]
  - Abscess jaw [Unknown]
  - Bone lesion [Unknown]
  - Fistula [Unknown]
  - Sensitivity of teeth [Unknown]
  - Mastication disorder [Unknown]
  - Gastric ulcer [Unknown]
  - Osteomyelitis [Unknown]
  - Deafness unilateral [Unknown]
  - Hiatus hernia [Unknown]
  - Barrett^s oesophagus [Unknown]
  - Gastritis [Unknown]
  - Osteoporosis [Unknown]
  - Otitis media [Unknown]
  - Plasmacytoma [Unknown]
  - Kyphoscoliosis [Unknown]
  - Chronic sinusitis [Unknown]
  - Cachexia [Unknown]
  - Anaemia [Unknown]
  - Gastrooesophageal reflux disease [Unknown]
  - Hepatic cyst [Unknown]
  - Dysuria [Unknown]
  - Gait disturbance [Unknown]
  - Rheumatoid arthritis [Unknown]
  - Peptic ulcer [Unknown]
  - Osteopenia [Unknown]
  - Kyphosis [Unknown]
  - Oesophagitis [Unknown]
  - Neuropathy peripheral [Unknown]
  - Monoclonal gammopathy [Unknown]
  - Lymphadenopathy [Unknown]
  - Back pain [Unknown]
  - Tricuspid valve incompetence [Unknown]
  - Mitral valve incompetence [Unknown]
  - Chest pain [Unknown]
  - Renal failure acute [Recovered/Resolved]
  - Weight decreased [Unknown]
  - Spinal compression fracture [Unknown]
  - Swelling face [Unknown]
  - Haemorrhage [Unknown]
  - Aortic calcification [Unknown]
  - Spinal deformity [Unknown]
  - Intervertebral disc protrusion [Unknown]
  - Vertebral foraminal stenosis [Unknown]
  - Osteosclerosis [Unknown]
  - Developmental hip dysplasia [Unknown]
  - Neck mass [Unknown]
  - Pathological fracture [Unknown]
  - Soft tissue inflammation [Unknown]
  - Bronchial disorder [Unknown]
  - Pericardial effusion [Unknown]
  - Soft tissue mass [Unknown]
  - Calcinosis [Unknown]
  - Phlebolith [Unknown]
  - Nephrolithiasis [Unknown]
  - Injection site granuloma [Unknown]
  - Vertebral wedging [Unknown]
  - Exostosis [Unknown]
  - Vomiting [Unknown]
  - Diarrhoea [Unknown]
  - Abdominal pain [Unknown]
  - Arthralgia [Unknown]
  - Pain in extremity [Unknown]
  - Hypoaesthesia [Unknown]
  - Oral cavity fistula [Unknown]
  - Osteolysis [Unknown]
  - Bone disorder [Unknown]
  - Cellulitis [Recovered/Resolved]
  - Left atrial dilatation [Unknown]
  - Right atrial dilatation [Unknown]
  - Rib deformity [Unknown]
  - Pulmonary congestion [Unknown]
  - Atelectasis [Unknown]
  - Spinal osteoarthritis [Unknown]
  - Chest wall mass [Unknown]
  - Aortic disorder [Unknown]
  - Mitral valve calcification [Unknown]
  - Dyspnoea [Unknown]
  - Pneumonia fungal [Unknown]
  - Cough [Unknown]
